FAERS Safety Report 5313865-6 (Version None)
Quarter: 2007Q2

REPORT INFORMATION
  Report Type: 
  Country: None (occurrence: None)
  Receive Date: 20070501
  Receipt Date: 20070420
  Transmission Date: 20071010
  Serious: Yes (Other)
  Sender: FDA-Public Use
  Company Number: IT-JNJFOC-20070405120

PATIENT
  Age: 51 Year
  Sex: Female

DRUGS (1)
  1. CAELYX [Suspect]
     Indication: CHEMOTHERAPY
     Route: 042

REACTIONS (3)
  - DERMATITIS [None]
  - INFUSION RELATED REACTION [None]
  - LARYNGEAL OEDEMA [None]
